FAERS Safety Report 22186027 (Version 3)
Quarter: 2023Q2

REPORT INFORMATION
  Report Type: Spontaneous
  Country: US (occurrence: US)
  Receive Date: 20230407
  Receipt Date: 20230526
  Transmission Date: 20230722
  Serious: No
  Sender: FDA-Public Use
  Company Number: US-GSK-US2023AMR047919

PATIENT
  Age: 74 Year
  Sex: Female

DRUGS (1)
  1. NUCALA [Suspect]
     Active Substance: MEPOLIZUMAB
     Indication: Emphysema
     Dosage: 100 MG (100 MG/ML)
     Dates: start: 202201

REACTIONS (5)
  - Exposure via skin contact [Unknown]
  - Accidental exposure to product [Unknown]
  - Incorrect dose administered [Unknown]
  - Product use in unapproved indication [Unknown]
  - Product complaint [Unknown]

NARRATIVE: CASE EVENT DATE: 20230329
